FAERS Safety Report 5260735-8 (Version None)
Quarter: 2007Q1

REPORT INFORMATION
  Report Type: 
  Country: None (occurrence: None)
  Receive Date: 20070226
  Receipt Date: 20070209
  Transmission Date: 20070707
  Serious: Yes (Death)
  Sender: FDA-Public Use
  Company Number: 2007VX000503

PATIENT
  Age: 78 Year
  Sex: Male
  Weight: 70 kg

DRUGS (10)
  1. PERMAX [Suspect]
     Indication: PARKINSON'S DISEASE
     Dosage: 1 MG; QID; 0.5 MG;BID
     Dates: start: 19900101
  2. PERMAX [Suspect]
     Indication: PARKINSON'S DISEASE
     Dosage: 1 MG; QID; 0.5 MG;BID
     Dates: start: 19900101
  3. COMTAN [Concomitant]
  4. SELEGILNE HYDROCHLORIDE [Concomitant]
  5. SYMMETREL [Concomitant]
  6. FLUDROCORTISONE ACETATE [Concomitant]
  7. OXAZEPAM [Concomitant]
  8. PANTOZOL [Concomitant]
  9. MAALOX FAST BLOCKER [Concomitant]
  10. CARBASALATE CALCIUM [Concomitant]

REACTIONS (5)
  - APNOEA [None]
  - BRADYCARDIA [None]
  - DEPRESSED LEVEL OF CONSCIOUSNESS [None]
  - HYPERKINESIA [None]
  - HYPERTHERMIA [None]
